FAERS Safety Report 7712147-2 (Version None)
Quarter: 2011Q3

REPORT INFORMATION
  Report Type: 
  Country: None (occurrence: None)
  Receive Date: 20110826
  Receipt Date: 20110819
  Transmission Date: 20111222
  Serious: Yes (Hospitalization)
  Sender: FDA-Public Use
  Company Number: US-CEPHALON-2011004396

PATIENT
  Age: 27 Year
  Sex: Female

DRUGS (7)
  1. NUVIGIL [Suspect]
     Indication: NARCOLEPSY
     Route: 048
  2. YAZ [Concomitant]
  3. ZYRTEC [Concomitant]
  4. SINGULAIR [Concomitant]
  5. NASONEX [Concomitant]
  6. PROVIGIL [Suspect]
     Indication: NARCOLEPSY
     Route: 048
  7. ZYREM [Concomitant]

REACTIONS (2)
  - PULMONARY EMBOLISM [None]
  - DEEP VEIN THROMBOSIS [None]
